FAERS Safety Report 10252653 (Version 1)
Quarter: 2014Q2

REPORT INFORMATION
  Report Type: Spontaneous
  Country: US (occurrence: US)
  Receive Date: 20140623
  Receipt Date: 20140623
  Transmission Date: 20141212
  Serious: Yes (Other)
  Sender: FDA-Public Use
  Company Number: US-JNJFOC-20140612015

PATIENT
  Sex: 0

DRUGS (1)
  1. OLYSIO [Suspect]
     Indication: HEPATITIS C
     Route: 048

REACTIONS (2)
  - Guillain-Barre syndrome [Unknown]
  - Off label use [Unknown]
